FAERS Safety Report 5177427-6 (Version None)
Quarter: 2006Q4

REPORT INFORMATION
  Report Type: 
  Country: None (occurrence: None)
  Receive Date: 20061218
  Receipt Date: 20061029
  Transmission Date: 20070319
  Serious: Yes (Other)
  Sender: FDA-Public Use
  Company Number: FR-BRISTOL-MYERS SQUIBB COMPANY-13561683

PATIENT
  Age: 26 Year
  Sex: Female
  Weight: 60 kg

DRUGS (2)
  1. ABILIFY [Suspect]
     Indication: SCHIZOPHRENIA
     Route: 048
     Dates: start: 20060313, end: 20061030
  2. THERALENE [Concomitant]
     Indication: INSOMNIA
     Dates: start: 20060831

REACTIONS (2)
  - ABORTION SPONTANEOUS [None]
  - PREGNANCY [None]
